FAERS Safety Report 7428498-5 (Version None)
Quarter: 2011Q2

REPORT INFORMATION
  Report Type: 
  Country: None (occurrence: None)
  Receive Date: 20110421
  Receipt Date: 20110413
  Transmission Date: 20111010
  Serious: Yes (Hospitalization)
  Sender: FDA-Public Use
  Company Number: US-EISAI INC-E7867-00217-SPO-US

PATIENT
  Age: 63 Year
  Sex: Female

DRUGS (1)
  1. GLIADEL [Suspect]
     Dosage: UNKNOWN
     Route: 018
     Dates: start: 20110104

REACTIONS (2)
  - STAPHYLOCOCCUS TEST POSITIVE [None]
  - WOUND DEHISCENCE [None]
